FAERS Safety Report 17728612 (Version 1)
Quarter: 2020Q2

REPORT INFORMATION
  Report Type: Report from Study
  Country: None (occurrence: BR)
  Receive Date: 20200430
  Receipt Date: 20200430
  Transmission Date: 20200714
  Serious: Yes (Hospitalization, Other)
  Sender: FDA-Public Use
  Company Number: BR-ABBVIE-20K-020-3383086-00

PATIENT
  Sex: Female

DRUGS (1)
  1. HUMIRA [Suspect]
     Active Substance: ADALIMUMAB
     Indication: ANKYLOSING SPONDYLITIS
     Route: 058

REACTIONS (7)
  - Memory impairment [Not Recovered/Not Resolved]
  - Aphasia [Recovered/Resolved]
  - Diabetes mellitus [Not Recovered/Not Resolved]
  - Cerebrovascular accident [Unknown]
  - Muscular weakness [Recovering/Resolving]
  - Paraesthesia [Not Recovered/Not Resolved]
  - Deformity [Unknown]
